FAERS Safety Report 7800926-2 (Version None)
Quarter: 2011Q4

REPORT INFORMATION
  Report Type: 
  Country: None (occurrence: None)
  Receive Date: 20111006
  Receipt Date: 20111005
  Transmission Date: 20120403
  Serious: Yes (Other)
  Sender: FDA-Public Use
  Company Number: GR-BAYER-2011-095346

PATIENT
  Sex: Female

DRUGS (1)
  1. ULTRAVIST 150 [Suspect]
     Dosage: DAILY DOSE 80 ML
     Route: 042
     Dates: start: 20110901, end: 20110901

REACTIONS (1)
  - DERMATITIS BULLOUS [None]
